FAERS Safety Report 16053779 (Version 3)
Quarter: 2020Q1

REPORT INFORMATION
  Report Type: Spontaneous
  Country: US (occurrence: US)
  Receive Date: 20190308
  Receipt Date: 20200311
  Transmission Date: 20200409
  Serious: Yes (Other)
  Sender: FDA-Public Use
  Company Number: US-ASTRAZENECA-2019SE11039

PATIENT
  Age: 27971 Day
  Sex: Male

DRUGS (30)
  1. NEXIUM [Suspect]
     Active Substance: ESOMEPRAZOLE MAGNESIUM
     Indication: GASTROOESOPHAGEAL REFLUX DISEASE
     Dosage: GENERIC
     Route: 065
  2. DEXILANT [Concomitant]
     Active Substance: DEXLANSOPRAZOLE
  3. FOSAMAX PLUS D [Concomitant]
     Active Substance: ALENDRONATE SODIUM\CHOLECALCIFEROL
  4. CELEBREX [Concomitant]
     Active Substance: CELECOXIB
  5. NITROSTAT [Concomitant]
     Active Substance: NITROGLYCERIN
  6. CRESTOR [Concomitant]
     Active Substance: ROSUVASTATIN CALCIUM
  7. VESICARE [Concomitant]
     Active Substance: SOLIFENACIN SUCCINATE
  8. GABAPENTIN. [Concomitant]
     Active Substance: GABAPENTIN
  9. ENBREL [Concomitant]
     Active Substance: ETANERCEPT
  10. LIVALO [Concomitant]
     Active Substance: PITAVASTATIN CALCIUM
  11. OFLOXACIN. [Concomitant]
     Active Substance: OFLOXACIN
  12. PREVACID NAPRAPAC [Suspect]
     Active Substance: LANSOPRAZOLE\NAPROXEN
     Indication: GASTROOESOPHAGEAL REFLUX DISEASE
     Route: 065
     Dates: start: 20060601, end: 20070613
  13. NEXIUM [Suspect]
     Active Substance: ESOMEPRAZOLE MAGNESIUM
     Indication: GASTROOESOPHAGEAL REFLUX DISEASE
     Route: 048
     Dates: start: 20150113
  14. PRILOSEC [Suspect]
     Active Substance: OMEPRAZOLE MAGNESIUM
     Indication: GASTROOESOPHAGEAL REFLUX DISEASE
     Route: 048
     Dates: start: 2005
  15. PREVACID [Suspect]
     Active Substance: LANSOPRAZOLE
     Indication: GASTROOESOPHAGEAL REFLUX DISEASE
     Route: 065
     Dates: start: 20060601, end: 20070613
  16. PREVACID [Suspect]
     Active Substance: LANSOPRAZOLE
     Indication: GASTROOESOPHAGEAL REFLUX DISEASE
     Dosage: GENERIC
     Route: 065
  17. ASPIRIN. [Concomitant]
     Active Substance: ASPIRIN
  18. FENOFIBRIC ACID. [Concomitant]
     Active Substance: FENOFIBRIC ACID
  19. RANEXA [Concomitant]
     Active Substance: RANOLAZINE
  20. TRILIPIX [Concomitant]
     Active Substance: FENOFIBRIC ACID
  21. MINOCYCLINE HCL [Concomitant]
     Active Substance: MINOCYCLINE HYDROCHLORIDE
  22. NEXIUM [Suspect]
     Active Substance: ESOMEPRAZOLE MAGNESIUM
     Indication: GASTROOESOPHAGEAL REFLUX DISEASE
     Route: 048
     Dates: start: 2005
  23. NEXIUM [Suspect]
     Active Substance: ESOMEPRAZOLE MAGNESIUM
     Indication: GASTROOESOPHAGEAL REFLUX DISEASE
     Route: 048
     Dates: start: 20030102, end: 20130313
  24. PRILOSEC [Suspect]
     Active Substance: OMEPRAZOLE MAGNESIUM
     Indication: GASTROOESOPHAGEAL REFLUX DISEASE
     Dosage: GENERIC
     Route: 065
     Dates: start: 20070603, end: 20080122
  25. PRILOSEC [Suspect]
     Active Substance: OMEPRAZOLE MAGNESIUM
     Indication: GASTROOESOPHAGEAL REFLUX DISEASE
     Route: 048
     Dates: start: 20001215, end: 20060601
  26. PRILOSEC [Suspect]
     Active Substance: OMEPRAZOLE MAGNESIUM
     Indication: GASTROOESOPHAGEAL REFLUX DISEASE
     Dosage: GENERIC
     Route: 065
     Dates: start: 200803, end: 201312
  27. SIMVASTATIN. [Concomitant]
     Active Substance: SIMVASTATIN
  28. LIPITOR [Concomitant]
     Active Substance: ATORVASTATIN CALCIUM
  29. HYDROCODON ACETAMINOPHEN [Concomitant]
  30. AMOXICILLIN. [Concomitant]
     Active Substance: AMOXICILLIN

REACTIONS (3)
  - Renal injury [Unknown]
  - Chronic kidney disease [Not Recovered/Not Resolved]
  - Tubulointerstitial nephritis [Unknown]

NARRATIVE: CASE EVENT DATE: 20150428
